FAERS Safety Report 24216997 (Version 1)
Quarter: 2024Q3

REPORT INFORMATION
  Report Type: Spontaneous
  Country: NL (occurrence: NL)
  Receive Date: 20240816
  Receipt Date: 20240816
  Transmission Date: 20241016
  Serious: Yes (Hospitalization, Other)
  Sender: AUROBINDO
  Company Number: NL-APOTEX-2011AP000111

PATIENT
  Age: 84 Year
  Sex: Male

DRUGS (6)
  1. DOCETAXEL [Suspect]
     Active Substance: DOCETAXEL\DOCETAXEL ANHYDROUS
     Indication: Prostate cancer metastatic
     Dosage: 75 MILLIGRAM/SQ. METER, EVERY 4 WEEKS
     Route: 065
  2. PREDNISONE [Suspect]
     Active Substance: PREDNISONE
     Indication: Prostate cancer metastatic
     Dosage: 5 MILLIGRAM, TWO TIMES A DAY
     Route: 065
  3. FENTANYL [Concomitant]
     Active Substance: FENTANYL\FENTANYL CITRATE
     Indication: Product used for unknown indication
     Dosage: UNK
     Route: 062
  4. ACENOCOUMAROL [Concomitant]
     Active Substance: ACENOCOUMAROL
     Indication: Product used for unknown indication
     Dosage: UNK
     Route: 065
  5. SOTALOL [Concomitant]
     Active Substance: SOTALOL
     Indication: Product used for unknown indication
     Dosage: 80 MILLIGRAM, ONCE A DAY
     Route: 065
  6. GOSERELIN [Concomitant]
     Active Substance: GOSERELIN
     Indication: Sacral pain
     Dosage: UNK
     Route: 065

REACTIONS (15)
  - Encephalitis herpes [Recovered/Resolved]
  - Paranoia [Recovered/Resolved]
  - Encephalitis post varicella [Recovered/Resolved]
  - Euphoric mood [Recovered/Resolved]
  - Psychotic disorder [Recovered/Resolved]
  - Neutropenia [Recovered/Resolved]
  - Herpes zoster [Unknown]
  - Delusion [Recovered/Resolved]
  - Incoherent [Unknown]
  - Mood altered [Unknown]
  - Rash vesicular [Unknown]
  - Aggression [Unknown]
  - Fear [Unknown]
  - Abnormal behaviour [Unknown]
  - Agitation [Unknown]
